FAERS Safety Report 5287826-X (Version None)
Quarter: 2007Q1

REPORT INFORMATION
  Report Type: 
  Country: None (occurrence: None)
  Receive Date: 20070117
  Receipt Date: 20061204
  Transmission Date: 20070707
  Serious: No
  Sender: FDA-Public Use
  Company Number: IPX00015

PATIENT
  Age: 12 Year
  Sex: Male
  Weight: 41 kg

DRUGS (1)
  1. IPLEX [Suspect]
     Indication: INSULIN-LIKE GROWTH FACTOR DECREASED
     Dosage: 05. MG/KG/DAILY/SC
     Route: 058
     Dates: start: 20060820, end: 20061125

REACTIONS (2)
  - DYSPNOEA [None]
  - INJECTION SITE ERYTHEMA [None]
